FAERS Safety Report 11972208 (Version 2)
Quarter: 2016Q1

REPORT INFORMATION
  Report Type: Spontaneous
  Country: US (occurrence: US)
  Receive Date: 20160128
  Receipt Date: 20160209
  Transmission Date: 20160526
  Serious: Yes (Hospitalization, Other)
  Sender: FDA-Public Use
  Company Number: US-APOTEX-2016AP006021

PATIENT
  Age: 52 Year
  Sex: Male

DRUGS (2)
  1. ACYCLOVIR. [Suspect]
     Active Substance: ACYCLOVIR
     Indication: ENCEPHALITIS VIRAL
     Dosage: 600 MG EVERY 12 HOURS
     Route: 042
  2. VALACYCLOVIR TABLETS USP [Suspect]
     Active Substance: VALACYCLOVIR HYDROCHLORIDE
     Indication: HERPES ZOSTER
     Dosage: 1 G, TID
     Route: 048

REACTIONS (4)
  - Neurotoxicity [Recovered/Resolved]
  - Altered state of consciousness [Recovered/Resolved]
  - Hallucination, auditory [Recovered/Resolved]
  - Status epilepticus [Recovered/Resolved]
